FAERS Safety Report 24138429 (Version 3)
Quarter: 2024Q3

REPORT INFORMATION
  Report Type: Spontaneous
  Country: MX (occurrence: MX)
  Receive Date: 20240725
  Receipt Date: 20240801
  Transmission Date: 20241017
  Serious: Yes (Hospitalization, Other)
  Sender: NOVARTIS
  Company Number: MX-002147023-NVSC2024MX152367

PATIENT
  Age: 30 Year
  Sex: Male

DRUGS (8)
  1. BASILIXIMAB [Suspect]
     Active Substance: BASILIXIMAB
     Indication: Renal transplant
     Route: 065
  2. VALGANCICLOVIR [Concomitant]
     Active Substance: VALGANCICLOVIR
     Indication: Cytomegalovirus infection
     Dosage: UNK
     Route: 065
  3. SULFAMETHOXAZOLE\TRIMETHOPRIM [Concomitant]
     Active Substance: SULFAMETHOXAZOLE\TRIMETHOPRIM
     Indication: Cytomegalovirus infection
     Dosage: UNK
     Route: 065
  4. TACROLIMUS [Concomitant]
     Active Substance: TACROLIMUS
     Indication: Product used for unknown indication
     Dosage: UNK
     Route: 065
  5. MYCOPHENOLATE MOFETIL [Concomitant]
     Active Substance: MYCOPHENOLATE MOFETIL
     Indication: Product used for unknown indication
     Dosage: UNK
     Route: 065
  6. PREDNISONE [Concomitant]
     Active Substance: PREDNISONE
     Indication: Product used for unknown indication
     Dosage: DOSE REDUCED
     Route: 065
  7. CEFTAZIDIME [Concomitant]
     Active Substance: CEFTAZIDIME
     Indication: Product used for unknown indication
     Dosage: UNK
     Route: 065
  8. LEVOFLOXACIN [Concomitant]
     Active Substance: LEVOFLOXACIN
     Indication: Product used for unknown indication
     Dosage: UNK
     Route: 065

REACTIONS (30)
  - Pneumonia [Unknown]
  - Urethral stenosis [Unknown]
  - Renal impairment [Not Recovered/Not Resolved]
  - Hydronephrosis [Unknown]
  - Nephropathy [Unknown]
  - Bone tuberculosis [Unknown]
  - Tuberculosis [Unknown]
  - Hypoperfusion [Unknown]
  - Blood urea increased [Unknown]
  - Arterial disorder [Unknown]
  - Diarrhoea [Unknown]
  - Pyrexia [Unknown]
  - Back pain [Unknown]
  - Haematuria [Unknown]
  - Sterile pyuria [Unknown]
  - Blood creatinine [Unknown]
  - Haematuria [Not Recovered/Not Resolved]
  - Haematuria [Unknown]
  - Anaemia [Unknown]
  - Vesicoureteric reflux [Unknown]
  - Pigmentation disorder [Unknown]
  - Fracture [Unknown]
  - Atrophy [Unknown]
  - Inflammation [Unknown]
  - Renal disorder [Unknown]
  - Urinary tract disorder [Unknown]
  - Intervertebral disc degeneration [Unknown]
  - Bone density decreased [Unknown]
  - Granuloma [Unknown]
  - Fibrosis [Unknown]

NARRATIVE: CASE EVENT DATE: 20160101
